FAERS Safety Report 8538365-1 (Version None)
Quarter: 2012Q3

REPORT INFORMATION
  Report Type: 
  Country: None (occurrence: None)
  Receive Date: 20120726
  Receipt Date: 20120723
  Transmission Date: 20120928
  Serious: No
  Sender: FDA-Public Use
  Company Number: US-PFIZER INC-2012177968

PATIENT
  Sex: Male

DRUGS (2)
  1. XANAX [Suspect]
     Dosage: 2 MG, UNK
  2. ALPRAZOLAM [Suspect]
     Dosage: 2 MG, UNK

REACTIONS (2)
  - SOMNOLENCE [None]
  - DRUG INTOLERANCE [None]
